FAERS Safety Report 8835379 (Version 2)
Quarter: 2012Q4

REPORT INFORMATION
  Report Type: Report from Study
  Country: US (occurrence: US)
  Receive Date: 20121011
  Receipt Date: 20121126
  Transmission Date: 20130627
  Serious: Yes (Hospitalization)
  Sender: FDA-Public Use
  Company Number: US-BAXTER-2012BAX019255

PATIENT
  Age: 67 Year
  Sex: Female
  Weight: 77.18 kg

DRUGS (16)
  1. GAMMAGARD LIQUID [Suspect]
     Indication: ALZHEIMER^S DISEASE
     Route: 042
     Dates: start: 20120925, end: 20120925
  2. GAMMAGARD LIQUID [Suspect]
     Route: 042
     Dates: start: 20120830, end: 20120830
  3. GAMMAGARD LIQUID [Suspect]
     Route: 042
     Dates: start: 20120913, end: 20120913
  4. MEMANTINE [Concomitant]
     Indication: ALZHEIMER^S DISEASE
     Route: 048
     Dates: start: 20120531
  5. RALOXIFENE HCL [Concomitant]
     Indication: OSTEOPOROSIS
     Dates: start: 2000
  6. PAROXETINE HCL [Concomitant]
     Indication: ANXIETY
     Route: 048
     Dates: start: 2011
  7. DOCUSATE SODIUM [Concomitant]
     Indication: CONSTIPATION PROPHYLAXIS
     Route: 048
     Dates: start: 1990
  8. FEXOFENADINE [Concomitant]
     Indication: SEASONAL ALLERGY
     Route: 048
     Dates: start: 20120911
  9. IBUPROFEN [Concomitant]
     Indication: SINUS HEADACHE
     Route: 048
     Dates: start: 2000
  10. IBUPROFEN [Concomitant]
     Indication: LOW BACK ACHE
     Route: 048
     Dates: start: 20120830, end: 20120830
  11. MULTIVITAMIN [Concomitant]
     Indication: NUTRITIONAL SUPPLEMENT
     Dosage: 1 TAB
     Route: 048
     Dates: start: 1980
  12. VITAMIN B12 [Concomitant]
     Indication: NUTRITIONAL SUPPLEMENT
     Route: 048
     Dates: start: 1990
  13. FISH OIL [Concomitant]
     Indication: NUTRITIONAL SUPPLEMENT
     Route: 048
     Dates: start: 1990
  14. CALCIUM [Concomitant]
     Indication: NUTRITIONAL SUPPLEMENT
     Route: 048
     Dates: start: 1994
  15. TRIPLE GINSENG [Concomitant]
     Indication: NUTRITIONAL SUPPLEMENT
     Dosage: 1 TAB
     Route: 048
     Dates: start: 1994
  16. COENZYME Q10 [Concomitant]
     Indication: NUTRITIONAL SUPPLEMENT
     Route: 048
     Dates: start: 201101

REACTIONS (1)
  - Venous occlusion [Recovered/Resolved]
